FAERS Safety Report 8434962-2 (Version None)
Quarter: 2012Q2

REPORT INFORMATION
  Report Type: 
  Country: None (occurrence: None)
  Receive Date: 20120608
  Receipt Date: 20120608
  Transmission Date: 20120825
  Serious: Yes (Hospitalization)
  Sender: FDA-Public Use
  Company Number: None

PATIENT
  Age: 17 Year
  Sex: Female

DRUGS (5)
  1. LAMOTRIGINE [Suspect]
     Dosage: 5 TABS OD INGESTION PO
     Route: 048
     Dates: start: 20120605
  2. LITHIUM [Concomitant]
  3. RITALIN [Concomitant]
  4. SERTRALINE HYDROCHLORIDE [Concomitant]
  5. ATIVAN [Concomitant]

REACTIONS (1)
  - DYSTONIA [None]
